FAERS Safety Report 5662388-3 (Version None)
Quarter: 2008Q1

REPORT INFORMATION
  Report Type: 
  Country: None (occurrence: None)
  Receive Date: 20080310
  Receipt Date: 20080228
  Transmission Date: 20080703
  Serious: Yes (Other)
  Sender: FDA-Public Use
  Company Number: FABR-1000042

PATIENT
  Age: 65 Year
  Sex: Female
  Weight: 104 kg

DRUGS (24)
  1. FABRAZYME [Suspect]
     Indication: FABRY'S DISEASE
     Dosage: 105 MG, Q2W, INTRAVENOUS
     Route: 042
     Dates: start: 20030902, end: 20080121
  2. IBUPROFEN [Concomitant]
  3. SYNTHROID [Concomitant]
  4. ALTACE [Concomitant]
  5. COMBIVENT [Concomitant]
  6. ACETAMINOPHEN [Concomitant]
  7. FIBER SUPPPLEMENTS (NOT OTHERWISE SPECIFIED) [Concomitant]
  8. KLONOPIN [Concomitant]
  9. MAGNESIUM OXIDE (MAGNESIUM OXIDE) [Concomitant]
  10. OVER THE COUNTER ESTROGEN SUPPLEMENT [Concomitant]
  11. LASIX [Concomitant]
  12. FUROSEMIDE [Concomitant]
  13. POTASSIUM (POTASSIUM) [Concomitant]
  14. CRESTOR [Concomitant]
  15. ASPIRIN [Concomitant]
  16. CALCIUM [Concomitant]
  17. DIGOXIN [Concomitant]
  18. PREMARIN [Concomitant]
  19. K-DUR 10 [Concomitant]
  20. COLACE (DOCUSATE SODIUM) [Concomitant]
  21. FISH OIL (NOT OTHERWISE SPECIFIED) [Concomitant]
  22. VITAMIN D [Concomitant]
  23. BETAPACE [Concomitant]
  24. COUMADIN [Concomitant]

REACTIONS (4)
  - ATRIAL FIBRILLATION [None]
  - CARDIAC DISORDER [None]
  - DISEASE RECURRENCE [None]
  - MALAISE [None]
